FAERS Safety Report 5955312-7 (Version None)
Quarter: 2008Q4

REPORT INFORMATION
  Report Type: 
  Country: None (occurrence: None)
  Receive Date: 20081117
  Receipt Date: 20081105
  Transmission Date: 20090506
  Serious: Yes (Hospitalization)
  Sender: FDA-Public Use
  Company Number: NZ-MERCK-0811USA01135

PATIENT
  Age: 42 Year
  Sex: Female

DRUGS (2)
  1. DECADRON [Suspect]
     Indication: DISSEMINATED TUBERCULOSIS
     Route: 048
  2. CALCITRIOL [Concomitant]
     Indication: VITAMIN D DEFICIENCY
     Route: 065

REACTIONS (2)
  - DISSEMINATED TUBERCULOSIS [None]
  - DRUG INEFFECTIVE [None]
